FAERS Safety Report 17797061 (Version 1)
Quarter: 2020Q2

REPORT INFORMATION
  Report Type: Spontaneous
  Country: CN (occurrence: CN)
  Receive Date: 20200518
  Receipt Date: 20200518
  Transmission Date: 20200714
  Serious: Yes (Other)
  Sender: FDA-Public Use
  Company Number: CN-BRISTOL-MYERS SQUIBB COMPANY-BMS-2020-038827

PATIENT
  Age: 69 Year
  Sex: Female
  Weight: 58 kg

DRUGS (1)
  1. BARACLUDE [Suspect]
     Active Substance: ENTECAVIR
     Indication: HEPATITIS B
     Dosage: 0.5 MILLIGRAM, QD
     Route: 048
     Dates: start: 2009

REACTIONS (5)
  - Hepatitis B [Not Recovered/Not Resolved]
  - Hepatic cirrhosis [Not Recovered/Not Resolved]
  - Product label issue [Unknown]
  - Weight decreased [Not Recovered/Not Resolved]
  - Steatohepatitis [Not Recovered/Not Resolved]

NARRATIVE: CASE EVENT DATE: 2017
